FAERS Safety Report 25928770 (Version 1)
Quarter: 2025Q4

REPORT INFORMATION
  Report Type: Other
  Country: JP (occurrence: JP)
  Receive Date: 20251016
  Receipt Date: 20251016
  Transmission Date: 20260118
  Serious: Yes (Hospitalization)
  Sender: NOVITIUM PHARMA
  Company Number: JP-NOVITIUM PHARMA-000102

PATIENT
  Age: 64 Year
  Sex: Male

DRUGS (3)
  1. METRONIDAZOLE [Suspect]
     Active Substance: METRONIDAZOLE
     Indication: Hepatic amoebiasis
  2. MEROPENEM [Concomitant]
     Active Substance: MEROPENEM
     Indication: Hepatic amoebiasis
  3. DAPTOMYCIN [Concomitant]
     Active Substance: DAPTOMYCIN
     Indication: Hepatic amoebiasis

REACTIONS (2)
  - Respiratory failure [Unknown]
  - Drug ineffective [Unknown]
